FAERS Safety Report 20171812 (Version 1)
Quarter: 2021Q4

REPORT INFORMATION
  Report Type: Report from Study
  Country: IL (occurrence: IL)
  Receive Date: 20211210
  Receipt Date: 20211210
  Transmission Date: 20220304
  Serious: Yes (Death, Hospitalization)
  Sender: FDA-Public Use
  Company Number: IL-NOVARTISPH-NVSC2021IL275059

PATIENT
  Age: 77 Year
  Sex: Female

DRUGS (1)
  1. PIQRAY [Suspect]
     Active Substance: ALPELISIB
     Indication: Breast cancer
     Dosage: 300 MG, QD
     Route: 048
     Dates: start: 20211124, end: 20211203

REACTIONS (2)
  - Dyspnoea [Fatal]
  - Blood glucose increased [Fatal]

NARRATIVE: CASE EVENT DATE: 20211127
